FAERS Safety Report 8390986-5 (Version None)
Quarter: 2012Q1

REPORT INFORMATION
  Report Type: 
  Country: None (occurrence: None)
  Receive Date: 20120323
  Receipt Date: 20111115
  Transmission Date: 20120608
  Serious: Yes (Hospitalization, Other)
  Sender: FDA-Public Use
  Company Number: 163-21880-11031240

PATIENT
  Age: 80 Year
  Sex: Male
  Weight: 79.3795 kg

DRUGS (11)
  1. ETOMIDATE [Concomitant]
  2. ATENOLOL [Concomitant]
  3. FENTANYL [Concomitant]
  4. AMBIEN [Concomitant]
  5. SIMVASTATIN [Concomitant]
  6. RYTHMOL [Concomitant]
  7. ZOCOR [Concomitant]
  8. PRILOSEC [Concomitant]
  9. REVLIMID [Suspect]
     Indication: 5Q MINUS SYNDROME
     Dosage: 5 MG, DAILY FOR 3 WEEKS AND OFF 1 WEEK, PO
     Route: 048
     Dates: start: 20110228
  10. LOVENOX [Concomitant]
  11. SYNTHROID [Concomitant]

REACTIONS (2)
  - ATRIAL FIBRILLATION [None]
  - FATIGUE [None]
